FAERS Safety Report 9478046 (Version 2)
Quarter: 2013Q3

REPORT INFORMATION
  Report Type: Report from Study
  Country: IT (occurrence: IT)
  Receive Date: 20130827
  Receipt Date: 20130827
  Transmission Date: 20140515
  Serious: Yes (Hospitalization, Other)
  Sender: FDA-Public Use
  Company Number: PHHO2011IT04412

PATIENT
  Age: 69 Year
  Sex: Male
  Weight: 110 kg

DRUGS (7)
  1. PLACEBO [Suspect]
     Indication: CORONARY ARTERY DISEASE
     Dosage: UNK
     Route: 048
     Dates: start: 20100830, end: 20110107
  2. PLACEBO [Suspect]
     Dosage: UNK
     Route: 048
     Dates: start: 20110116
  3. ALISKIREN [Suspect]
     Indication: CORONARY ARTERY DISEASE
     Dosage: 150 MG, UNK
     Route: 048
     Dates: start: 20100823, end: 20100829
  4. FUROSEMIDE [Concomitant]
     Indication: HYPERTENSION
     Dosage: 25 MG, UNK
     Route: 048
     Dates: start: 20100823
  5. ASPIRIN [Concomitant]
     Indication: CORONARY ARTERY DISEASE
     Dosage: 100 MG, QD
     Route: 048
     Dates: start: 20100715
  6. SINTROM [Concomitant]
     Indication: ATRIAL FIBRILLATION
     Dosage: UNK
     Dates: start: 2007
  7. PANTOPRAZOLE [Concomitant]
     Indication: PROPHYLAXIS

REACTIONS (2)
  - Intestinal obstruction [Recovered/Resolved]
  - Diverticulitis [Recovered/Resolved with Sequelae]
